FAERS Safety Report 11037525 (Version 1)
Quarter: 2015Q2

REPORT INFORMATION
  Report Type: Spontaneous
  Country: US (occurrence: US)
  Receive Date: 20150416
  Receipt Date: 20150416
  Transmission Date: 20150821
  Serious: Yes (Other)
  Sender: FDA-Public Use
  Company Number: US-ACTAVIS-2015-07546

PATIENT
  Age: 7 Year
  Sex: Male
  Weight: 30.84 kg

DRUGS (4)
  1. METHYLPHENIDATE [Concomitant]
     Active Substance: METHYLPHENIDATE
     Indication: ATTENTION DEFICIT/HYPERACTIVITY DISORDER
     Dosage: 15 MG, DAILY (10 MG IN THE MORNING, 5 MG IN THE AFTERNOON)
     Route: 065
     Dates: start: 201202, end: 201203
  2. CARBAMAZEPINE (AELLC) [Suspect]
     Active Substance: CARBAMAZEPINE
     Indication: SEIZURE
     Dosage: 300 MG, DAILY
     Route: 065
     Dates: start: 201202, end: 201204
  3. METHYLPHENIDATE [Concomitant]
     Active Substance: METHYLPHENIDATE
     Dosage: 10 MG, DAILY
     Route: 065
     Dates: end: 201112
  4. CARBAMAZEPINE (AELLC) [Suspect]
     Active Substance: CARBAMAZEPINE
     Dosage: TITRATED TO 300 MG DAILY
     Route: 065
     Dates: start: 201112, end: 201202

REACTIONS (1)
  - Mania [Recovered/Resolved]
